FAERS Safety Report 7631502-2 (Version None)
Quarter: 2011Q3

REPORT INFORMATION
  Report Type: 
  Country: None (occurrence: None)
  Receive Date: 20110725
  Receipt Date: 20110715
  Transmission Date: 20111222
  Serious: Yes (Hospitalization)
  Sender: FDA-Public Use
  Company Number: DE-BRISTOL-MYERS SQUIBB COMPANY-15764616

PATIENT
  Age: 50 Year
  Sex: Male

DRUGS (16)
  1. GEMCITABINE [Suspect]
     Indication: NON-SMALL CELL LUNG CANCER
     Dosage: LAST INF ON 02MAY2011 1000MG/M2; ON DAY 1AND 8
     Route: 042
     Dates: start: 20110401
  2. PANTOPRAZOLE [Concomitant]
     Route: 048
  3. DEXAMETHASONE [Concomitant]
     Dosage: 8MG IN 100ML NACL
     Route: 042
  4. MULTI-VITAMINS [Concomitant]
     Dosage: 1 AMPULE IN 100ML NACL
     Route: 042
  5. DURAGESIC-12 [Concomitant]
  6. METOCLOPRAMIDE [Concomitant]
  7. TPN ELECTROLYTES IN PLASTIC CONTAINER [Concomitant]
     Route: 042
  8. JONOSTERIL [Concomitant]
     Route: 042
  9. LIPOVENOES [Concomitant]
     Route: 042
  10. ARIXTRA [Concomitant]
     Route: 058
  11. CETUXIMAB [Suspect]
     Indication: NON-SMALL CELL LUNG CANCER
     Dosage: LAST INF ON 09MAY2011 400MG/M2.CETUXIMAB 2MG/ML IV INFUSION
     Route: 042
     Dates: start: 20110401
  12. GRANISETRON [Concomitant]
     Dosage: 3MG 1 AMPULE IN 100ML NACL
     Route: 042
  13. HALDOL [Concomitant]
  14. METAMIZOLE SODIUM [Concomitant]
  15. MELPERONE HCL [Concomitant]
  16. RAMIPRIL [Concomitant]
     Route: 048

REACTIONS (4)
  - LUNG INFILTRATION [None]
  - FATIGUE [None]
  - PARANEOPLASTIC SYNDROME [None]
  - CONFUSIONAL STATE [None]
